FAERS Safety Report 8309774-0 (Version None)
Quarter: 2012Q2

REPORT INFORMATION
  Report Type: 
  Country: None (occurrence: None)
  Receive Date: 20120425
  Receipt Date: 20120420
  Transmission Date: 20120825
  Serious: Yes (Hospitalization, Other)
  Sender: FDA-Public Use
  Company Number: PHHY2012BR007442

PATIENT
  Age: 80 Year
  Sex: Female

DRUGS (9)
  1. CARVEDILOL [Concomitant]
     Indication: COAGULOPATHY
     Dosage: 3.125 MG, BID
     Route: 048
  2. LANTUS [Concomitant]
     Indication: DIABETES MELLITUS
     Dosage: 68 ML, QD
  3. LASIX [Concomitant]
     Indication: DIURETIC THERAPY
     Dosage: 40 MG, QD
     Route: 048
  4. SIMVASTATIN [Concomitant]
     Indication: DIABETES MELLITUS
     Dosage: 20 MG, QD
     Route: 048
  5. INSULIN [Concomitant]
     Indication: DIABETES MELLITUS
     Dosage: UNK UKN, UNK
  6. SPIRONOLACTONE [Concomitant]
     Indication: CARDIAC DISORDER
     Dosage: 25 MG, QD
     Route: 048
  7. TEGRETOL-XR [Suspect]
     Indication: MUSCLE SPASMS
     Dosage: 1 DF, Q12H
     Dates: start: 20120121, end: 20120122
  8. ENALAPRIL MALEATE [Concomitant]
     Indication: CARDIAC DISORDER
     Dosage: 10 MG, BID
     Route: 048
  9. SOMALGIN [Concomitant]
     Indication: THROMBOSIS
     Dosage: 100 MG, QD
     Route: 048

REACTIONS (6)
  - DRUG INTOLERANCE [None]
  - ANAEMIA [None]
  - DAYDREAMING [None]
  - DECREASED APPETITE [None]
  - MALAISE [None]
  - CONFUSIONAL STATE [None]
